FAERS Safety Report 9773685 (Version 1)
Quarter: 2013Q4

REPORT INFORMATION
  Report Type: Report from Study
  Country: GR (occurrence: GR)
  Receive Date: 20131219
  Receipt Date: 20131219
  Transmission Date: 20140711
  Serious: Yes (Hospitalization)
  Sender: FDA-Public Use
  Company Number: GR-US-EMD SERONO, INC.-7258092

PATIENT
  Age: 34 Year
  Sex: Female
  Weight: 72 kg

DRUGS (3)
  1. REBIF [Suspect]
     Indication: MULTIPLE SCLEROSIS
     Route: 058
     Dates: start: 201205, end: 201207
  2. REBIF [Suspect]
     Route: 058
     Dates: start: 201207
  3. LEVOTHYROXINE SODIUM [Concomitant]
     Indication: HYPOTHYROIDISM
     Route: 048
     Dates: start: 2007

REACTIONS (1)
  - Rheumatoid arthritis [Recovering/Resolving]
